FAERS Safety Report 5630886-4 (Version None)
Quarter: 2008Q1

REPORT INFORMATION
  Report Type: 
  Country: None (occurrence: None)
  Receive Date: 20080219
  Receipt Date: 20080208
  Transmission Date: 20080703
  Serious: Yes (Congenital Anomaly, Other)
  Sender: FDA-Public Use
  Company Number: CH-ROCHE-435016

PATIENT
  Sex: Female
  Weight: 1.3 kg

DRUGS (3)
  1. LARIAM [Suspect]
     Indication: MALARIA PROPHYLAXIS
     Dosage: INDICATION DRUG ACTING ON OTHER BLOOD PROTOZOA
     Route: 064
     Dates: start: 20051208, end: 20051222
  2. STILNOX [Concomitant]
     Dosage: REPORTED  FREQUENCY 2 TOTAL.
     Dates: start: 20051208, end: 20051210
  3. ELTROXIN [Concomitant]
     Indication: HYPOTHYROIDISM

REACTIONS (4)
  - CEREBRAL VENTRICLE DILATATION [None]
  - DRUG EXPOSURE DURING PREGNANCY [None]
  - FOETAL GROWTH RETARDATION [None]
  - PREMATURE BABY [None]
